FAERS Safety Report 15931476 (Version 1)
Quarter: 2019Q1

REPORT INFORMATION
  Report Type: Spontaneous
  Country: US (occurrence: US)
  Receive Date: 20190207
  Receipt Date: 20190207
  Transmission Date: 20190417
  Serious: Yes (Other)
  Sender: FDA-Public Use
  Company Number: US-ACCORD-105375

PATIENT
  Age: 79 Year
  Sex: Male

DRUGS (1)
  1. METHOTREXATE. [Suspect]
     Active Substance: METHOTREXATE
     Indication: DERMATITIS

REACTIONS (4)
  - Anaemia megaloblastic [Recovering/Resolving]
  - Liver function test increased [Unknown]
  - Skin toxicity [Recovering/Resolving]
  - Pancytopenia [Recovering/Resolving]
